FAERS Safety Report 6217499-0 (Version None)
Quarter: 2009Q2

REPORT INFORMATION
  Report Type: 
  Country: None (occurrence: None)
  Receive Date: 20090608
  Receipt Date: 20090216
  Transmission Date: 20091009
  Serious: No
  Sender: FDA-Public Use
  Company Number: A0760177A

PATIENT
  Age: 43 Year
  Sex: Female

DRUGS (6)
  1. WELLBUTRIN XL [Suspect]
     Dosage: 150MG PER DAY
     Route: 048
  2. TRIAMTERENE AND HYDROCHLOROTHIAZIDE [Concomitant]
  3. BUSPIRONE HCL [Concomitant]
  4. BENADRYL [Concomitant]
  5. ALLEGRA [Concomitant]
  6. ALLERGY MEDICATION [Concomitant]

REACTIONS (3)
  - DRUG ADMINISTRATION ERROR [None]
  - MEDICATION RESIDUE [None]
  - PRODUCT QUALITY ISSUE [None]
